FAERS Safety Report 5805114-7 (Version None)
Quarter: 2008Q3

REPORT INFORMATION
  Report Type: 
  Country: None (occurrence: None)
  Receive Date: 20080707
  Receipt Date: 20080623
  Transmission Date: 20090109
  Serious: Yes (Other)
  Sender: FDA-Public Use
  Company Number: 163-20785-07110737

PATIENT
  Age: 80 Year
  Sex: Female

DRUGS (15)
  1. THALOMID [Suspect]
     Indication: MULTIPLE MYELOMA
     Dosage: 50 MG, 1 IN 1 D, ORAL; 100 MG, 1 IN 1 D, ORAL
     Route: 048
     Dates: start: 20071113, end: 20071203
  2. THALOMID [Suspect]
     Indication: MULTIPLE MYELOMA
     Dosage: 50 MG, 1 IN 1 D, ORAL; 100 MG, 1 IN 1 D, ORAL
     Route: 048
     Dates: start: 20070828
  3. PREDNISONE TAB [Concomitant]
  4. MELPHALAN (MELPHALAN) [Concomitant]
  5. ZOMETA [Concomitant]
  6. ASPIRIN [Concomitant]
  7. VICODIN [Concomitant]
  8. PRILOSEC [Concomitant]
  9. GLUCOSAMINE (GLUCOSAMINE) [Concomitant]
  10. CALCIUM (CALCIUM) [Concomitant]
  11. VITAMIN D [Concomitant]
  12. MULTIVITAMIN [Concomitant]
  13. ASCORBIC ACID [Concomitant]
  14. VITAMIN E [Concomitant]
  15. VITAMIN B COMPLEX (B-KOMPLEX ^LECIVA^) [Concomitant]

REACTIONS (8)
  - DIZZINESS [None]
  - DYSGEUSIA [None]
  - DYSPHAGIA [None]
  - GAIT DISTURBANCE [None]
  - HEADACHE [None]
  - MOUTH ULCERATION [None]
  - NEUROPATHY PERIPHERAL [None]
  - THORACIC VERTEBRAL FRACTURE [None]
